FAERS Safety Report 4445821-4 (Version None)
Quarter: 2004Q3

REPORT INFORMATION
  Report Type: 
  Country: None (occurrence: None)
  Receive Date: 20040903
  Receipt Date: 20040819
  Transmission Date: 20050211
  Serious: Yes (Death)
  Sender: FDA-Public Use
  Company Number: 6010132

PATIENT
  Age: 77 Year
  Sex: Male

DRUGS (4)
  1. ENALAPRIL 10 MG TABLETS (TABLETS) (ENALAPRIL) [Suspect]
     Indication: CARDIAC FAILURE CONGESTIVE
     Dosage: 20,000 MG (10 MG, 2 IN 1 D) ORAL
     Route: 048
     Dates: start: 20040422, end: 20040802
  2. INDOMETHACIN [Concomitant]
  3. ANALGAN (PARACETAMOL) [Concomitant]
  4. MYORELAX (MEPHENESIN, METHYL NICOTINATE) [Concomitant]

REACTIONS (1)
  - SUDDEN DEATH [None]
